FAERS Safety Report 9008608 (Version 2)
Quarter: 2013Q2

REPORT INFORMATION
  Report Type: Spontaneous
  Country: US (occurrence: US)
  Receive Date: 20130111
  Receipt Date: 20130510
  Transmission Date: 20140414
  Serious: Yes (Other)
  Sender: FDA-Public Use
  Company Number: US-BAYER-2013-003410

PATIENT
  Age: 40 Year
  Sex: Female

DRUGS (3)
  1. YASMIN [Suspect]
     Indication: CONTRACEPTION
     Dosage: UNK
     Dates: start: 20020207
  2. OCELLA [Suspect]
     Dosage: UNK
     Dates: start: 20020207
  3. HYDROCODONE/ACETAMINOPHEN [Concomitant]
     Dosage: 5-500
     Route: 048

REACTIONS (6)
  - Cholecystitis [None]
  - Cholecystitis chronic [None]
  - Deep vein thrombosis [None]
  - Injury [None]
  - Pain [None]
  - Pain [None]
